FAERS Safety Report 6277507-8 (Version None)
Quarter: 2009Q3

REPORT INFORMATION
  Report Type: 
  Country: None (occurrence: None)
  Receive Date: 20090720
  Receipt Date: 20090710
  Transmission Date: 20100115
  Serious: Yes (Death)
  Sender: FDA-Public Use
  Company Number: 2009EU002706

PATIENT
  Age: 52 Year
  Sex: Male

DRUGS (12)
  1. PROGRAF [Suspect]
     Indication: BONE MARROW TRANSPLANT
     Dosage: 0.5 MG, BID, ORAL
     Route: 048
     Dates: start: 20080101
  2. CELLCEPT [Suspect]
     Indication: BONE MARROW TRANSPLANT
     Dosage: 1 G, BID, IV DRIP
     Route: 041
     Dates: start: 20080101
  3. SOLU-MEDROL [Suspect]
     Dosage: 125 MG, UID/QD, IV DRIP
     Route: 041
  4. FOSCAVIR [Concomitant]
  5. TAZOBAC (TAZOBACTAM SODIUM) [Concomitant]
  6. LAMIVUDINE [Concomitant]
  7. WELLVONE (ATOVAQUONE) [Concomitant]
  8. URSO FALK [Concomitant]
  9. TRAMADOL HCL [Concomitant]
  10. NOXAFIL [Concomitant]
  11. ZANTAC [Concomitant]
  12. CALCIMAGON-D 3 (COLECALCIFEROL) [Concomitant]

REACTIONS (5)
  - ACUTE GRAFT VERSUS HOST DISEASE IN INTESTINE [None]
  - ACUTE GRAFT VERSUS HOST DISEASE IN LIVER [None]
  - AGRANULOCYTOSIS [None]
  - ENTEROCOCCAL SEPSIS [None]
  - SEPTIC SHOCK [None]
